FAERS Safety Report 9852341 (Version 1)
Quarter: 2014Q1

REPORT INFORMATION
  Report Type: Spontaneous
  Country: US (occurrence: None)
  Receive Date: 20140128
  Receipt Date: 20140128
  Transmission Date: 20141002
  Serious: Yes (Other)
  Sender: FDA-Public Use
  Company Number: None

PATIENT
  Age: 74 Year
  Sex: Female
  Weight: 74.84 kg

DRUGS (7)
  1. CREST COMPLETE MULTI-BENEFIT TOOTHPASTE [Suspect]
  2. VAGIFEM [Suspect]
     Route: 067
     Dates: start: 20130930
  3. AVAPRO [Concomitant]
  4. CARDIZEM [Concomitant]
  5. COMPOUNDED VITAMIN D [Concomitant]
  6. CALCIUM [Concomitant]
  7. FISH OIL [Concomitant]

REACTIONS (1)
  - Stomatitis [None]
